FAERS Safety Report 9723394 (Version 1)
Quarter: 2013Q4

REPORT INFORMATION
  Report Type: Report from Study
  Country: ZW (occurrence: ZW)
  Receive Date: 20131202
  Receipt Date: 20131202
  Transmission Date: 20140711
  Serious: Yes (Hospitalization)
  Sender: FDA-Public Use
  Company Number: ZW-BRISTOL-MYERS SQUIBB COMPANY-19873108

PATIENT
  Age: 37 Year
  Sex: Female

DRUGS (8)
  1. EFAVIRENZ TABS [Suspect]
     Indication: HIV INFECTION
     Route: 048
     Dates: start: 20131029
  2. RALTEGRAVIR [Suspect]
     Indication: HIV INFECTION
     Dosage: TABS
     Route: 048
     Dates: start: 20131029
  3. TENOFOVIR [Concomitant]
     Dates: start: 20131029
  4. EMTRICITABINE [Concomitant]
     Dates: start: 20131029
  5. SULFAMETHOXAZOLE + TRIMETHOPRIM [Concomitant]
     Dates: start: 20131008
  6. VITAMINS [Concomitant]
     Dates: start: 20131017, end: 20131030
  7. LOPERAMIDE HCL [Concomitant]
     Dates: start: 20131017, end: 20131030
  8. ACETAMINOPHEN [Concomitant]
     Dates: start: 20131015, end: 20131022

REACTIONS (5)
  - Confusional state [Unknown]
  - Local swelling [Unknown]
  - Diarrhoea [Unknown]
  - Decreased appetite [Unknown]
  - Insomnia [Unknown]
